FAERS Safety Report 12601457 (Version 1)
Quarter: 2016Q3

REPORT INFORMATION
  Report Type: Spontaneous
  Country: US (occurrence: None)
  Receive Date: 20160727
  Receipt Date: 20160727
  Transmission Date: 20161109
  Serious: Yes (Hospitalization, Other)
  Sender: FDA-Public Use
  Company Number: None

PATIENT
  Age: 61 Year
  Sex: Female
  Weight: 58.97 kg

DRUGS (8)
  1. FEXOFENADRINE [Concomitant]
  2. HORMONE REPLACEMENT [Concomitant]
  3. MAGNESIUM [Concomitant]
     Active Substance: MAGNESIUM
  4. VIVELLE [Concomitant]
     Active Substance: ESTRADIOL
  5. PROGESTERONE. [Concomitant]
     Active Substance: PROGESTERONE
  6. BO COMPLEX ZINC [Concomitant]
  7. CIPROFLOXIN [Suspect]
     Active Substance: CIPROFLOXACIN
     Indication: DIARRHOEA INFECTIOUS
     Route: 048
     Dates: start: 20160414, end: 20160415
  8. VITAMIN D [Concomitant]
     Active Substance: CHOLECALCIFEROL

REACTIONS (2)
  - Muscle strain [None]
  - Tendon rupture [None]

NARRATIVE: CASE EVENT DATE: 20160710
